FAERS Safety Report 5448208-0 (Version None)
Quarter: 2007Q3

REPORT INFORMATION
  Report Type: 
  Country: None (occurrence: None)
  Receive Date: 20070906
  Receipt Date: 20070830
  Transmission Date: 20080115
  Serious: Yes (Life-Threatening, Hospitalization, Disabling)
  Sender: FDA-Public Use
  Company Number: 2007S1000154

PATIENT
  Age: 10 Day
  Sex: Male
  Weight: 0.7 kg

DRUGS (5)
  1. NITRIC OXIDE [Suspect]
     Indication: LUNG DISORDER
     Dosage: 5 PPM; CONT; INH
     Route: 055
     Dates: start: 20070729
  2. NITRIC OXIDE [Suspect]
     Indication: PROPHYLAXIS
     Dosage: 5 PPM; CONT; INH
     Route: 055
     Dates: start: 20070729
  3. CEFOTAXIME SODIUM [Concomitant]
  4. GENTAMICIN [Concomitant]
  5. FLUCLOXACILLINE [Concomitant]

REACTIONS (4)
  - ESCHERICHIA SEPSIS [None]
  - INTRAVENTRICULAR HAEMORRHAGE NEONATAL [None]
  - MENINGITIS BACTERIAL [None]
  - PATENT DUCTUS ARTERIOSUS [None]
